FAERS Safety Report 16969239 (Version 1)
Quarter: 2019Q4

REPORT INFORMATION
  Report Type: Spontaneous
  Country: FR (occurrence: FR)
  Receive Date: 20191029
  Receipt Date: 20191029
  Transmission Date: 20200122
  Serious: Yes (Hospitalization, Other)
  Sender: FDA-Public Use
  Company Number: FR-AUROBINDO-AUR-APL-2019-068848

PATIENT
  Age: 49 Year
  Sex: Male

DRUGS (2)
  1. RISPERIDONE ARROW LAB 1 MG FILM-COATED TABLETS SCORED [Suspect]
     Active Substance: RISPERIDONE
     Indication: BIPOLAR DISORDER
     Dosage: 1 DOSAGE FORM, ONCE A DAY, IN THE EVENING
     Route: 048
     Dates: start: 201910
  2. RISPERIDONE ARROW LAB 1 MG FILM-COATED TABLETS SCORED [Suspect]
     Active Substance: RISPERIDONE
     Dosage: ATTEMPTED SUICIDE BY TAKING 40 TO 45 TABLETS
     Route: 048
     Dates: start: 20191016

REACTIONS (5)
  - Protrusion tongue [Recovered/Resolved]
  - Speech disorder [Recovered/Resolved]
  - Blood pressure decreased [Recovered/Resolved]
  - Intentional overdose [Recovered/Resolved]
  - Suicide attempt [Recovered/Resolved]

NARRATIVE: CASE EVENT DATE: 20191016
